FAERS Safety Report 4807543-7 (Version None)
Quarter: 2005Q4

REPORT INFORMATION
  Report Type: 
  Country: None (occurrence: None)
  Receive Date: 20051024
  Receipt Date: 20050318
  Transmission Date: 20060501
  Serious: Yes (Hospitalization)
  Sender: FDA-Public Use
  Company Number: JP-ROCHE-399420

PATIENT
  Age: 33 Year
  Sex: Female

DRUGS (4)
  1. CELLCEPT [Suspect]
     Route: 048
     Dates: start: 20050210
  2. NEORAL [Concomitant]
     Route: 048
     Dates: start: 20040224
  3. PREDNISOLONE [Concomitant]
     Dates: start: 20040818
  4. WARFARIN [Concomitant]
     Route: 048
     Dates: start: 20040818

REACTIONS (1)
  - NEPHROTIC SYNDROME [None]
